FAERS Safety Report 26170077 (Version 1)
Quarter: 2025Q4

REPORT INFORMATION
  Report Type: Spontaneous
  Country: KR (occurrence: KR)
  Receive Date: 20251217
  Receipt Date: 20251217
  Transmission Date: 20260117
  Serious: Yes (Death, Other)
  Sender: MALLINCKRODT
  Company Number: KR-MALLINCKRODT-MNK202508013

PATIENT
  Age: 3 Day
  Sex: Male
  Weight: 1 kg

DRUGS (4)
  1. NITRIC OXIDE [Suspect]
     Active Substance: NITRIC OXIDE
     Indication: Newborn persistent pulmonary hypertension
     Dosage: 20 PPM
     Route: 055
     Dates: start: 20251205, end: 202512
  2. NITRIC OXIDE [Suspect]
     Active Substance: NITRIC OXIDE
     Dosage: 8 PPM
     Route: 055
     Dates: start: 202512, end: 202512
  3. NITRIC OXIDE [Suspect]
     Active Substance: NITRIC OXIDE
     Dosage: 30 PPM
     Route: 055
     Dates: start: 202512, end: 20251207
  4. SURFACTANTS NOS [Concomitant]
     Indication: Respiratory failure
     Dosage: UNKNOWN
     Dates: start: 20251204, end: 20251204

REACTIONS (3)
  - Cardiac arrest [Fatal]
  - Newborn persistent pulmonary hypertension [Fatal]
  - Pulmonary haemorrhage [Unknown]

NARRATIVE: CASE EVENT DATE: 20251207
